FAERS Safety Report 9920210 (Version 5)
Quarter: 2014Q2

REPORT INFORMATION
  Report Type: Report from Study
  Country: US (occurrence: US)
  Receive Date: 20140224
  Receipt Date: 20140404
  Transmission Date: 20141212
  Serious: Yes (Hospitalization)
  Sender: FDA-Public Use
  Company Number: US-JNJFOC-20140212475

PATIENT
  Age: 13 Year
  Sex: Male
  Weight: 32.4 kg

DRUGS (7)
  1. REMICADE [Suspect]
     Indication: CROHN^S DISEASE
     Route: 042
     Dates: start: 20080108
  2. SOMATROPIN [Concomitant]
     Route: 065
  3. CIPRO [Concomitant]
     Route: 065
  4. ZOFRAN [Concomitant]
     Route: 065
  5. SIMPONI [Concomitant]
     Route: 058
  6. SIMPONI [Concomitant]
     Route: 058
     Dates: start: 20120622
  7. 6-MERCAPTOPURINE [Concomitant]
     Route: 065

REACTIONS (3)
  - Rectal stenosis [Not Recovered/Not Resolved]
  - Colitis [Recovered/Resolved]
  - Pseudomonas infection [Recovered/Resolved]
